FAERS Safety Report 10361953 (Version 1)
Quarter: 2014Q1

REPORT INFORMATION
  Report Type: Spontaneous
  Country: US (occurrence: None)
  Receive Date: 20140306
  Receipt Date: 20140306
  Transmission Date: 20141002
  Serious: Yes (Other)
  Sender: FDA-Public Use
  Company Number: 163-21880-13074916

PATIENT
  Age: 79 Year
  Sex: Male
  Weight: 92.08 kg

DRUGS (3)
  1. REVLIMID [Suspect]
     Indication: 5Q MINUS SYNDROME
     Dosage: 10 MG, 21 IN 21 D, PO
     Route: 048
     Dates: start: 20130701
  2. CIPROFLOXACIN (CIPROFLOXACIN) (UNKNOWN) (CIPROFLOXACIN) [Concomitant]
  3. DEXAMETHASONE (DEXAMETHASONE) (UNKNOWN) [Concomitant]

REACTIONS (7)
  - Full blood count decreased [None]
  - Haemoglobin decreased [None]
  - White blood cell count decreased [None]
  - Muscle spasms [None]
  - Dyspnoea [None]
  - Body temperature increased [None]
  - Constipation [None]
